FAERS Safety Report 4772321-4 (Version None)
Quarter: 2005Q3

REPORT INFORMATION
  Report Type: 
  Country: None (occurrence: None)
  Receive Date: 20050919
  Receipt Date: 20050906
  Transmission Date: 20060218
  Serious: Yes (Hospitalization)
  Sender: FDA-Public Use
  Company Number: JP-JNJFOC-20050806322

PATIENT
  Sex: Male

DRUGS (50)
  1. DUROTEP [Suspect]
     Route: 062
  2. DUROTEP [Suspect]
     Route: 062
  3. DUROTEP [Suspect]
     Route: 062
  4. DUROTEP [Suspect]
     Route: 062
  5. DUROTEP [Suspect]
     Route: 062
  6. DUROTEP [Suspect]
     Route: 062
  7. DUROTEP [Suspect]
     Route: 062
  8. DUROTEP [Suspect]
     Route: 062
  9. DUROTEP [Suspect]
     Indication: CANCER PAIN
     Route: 062
  10. FAMOTIDINE [Concomitant]
     Dosage: 2 DOSAGE FORM/DAY
  11. MAINTENANCE MEDIUM 4 [Concomitant]
  12. MAINTENANCE MEDIUM 4 [Concomitant]
  13. MAINTENANCE MEDIUM 4 [Concomitant]
  14. MAINTENANCE MEDIUM 3 [Concomitant]
  15. MAINTENANCE MEDIUM 3 [Concomitant]
  16. MAINTENANCE MEDIUM 3 [Concomitant]
  17. DEXAMETHASONE [Concomitant]
     Dosage: 2 DOSAGE FORM/DAY
  18. METOCLOPRAMIDE [Concomitant]
  19. METOCLOPRAMIDE [Concomitant]
     Dosage: 1 DOSAGE FORM/DAY
  20. METOCLOPRAMIDE [Concomitant]
     Dosage: 2 DOSAGE FORM/DAY
  21. FUROSEMIDE [Concomitant]
  22. FUROSEMIDE [Concomitant]
     Dosage: 1 DOSAGE FORM/DAY
  23. FLUOROURACIL [Concomitant]
     Dosage: 3.2 DOSAGE FORM/DAY
  24. METHOTREXATE [Concomitant]
     Dosage: 3 DOSAGE FORM/DAY
  25. LACTATED RINGER [Concomitant]
  26. LACTATED RINGER [Concomitant]
  27. LACTATED RINGER [Concomitant]
  28. AZASETRON HYDROCHLORIDE [Concomitant]
     Dosage: 1 DOSAGE FORM/DAY
  29. PIPERACILLIN SODIUM [Concomitant]
     Dosage: 2 DOSAGE FORM/DAY
  30. CARBOPLATIN [Concomitant]
     Dosage: 1 DOSAGE FORM/DAY
  31. GRANISETRON  HCL [Concomitant]
     Dosage: 5 DOSAGE FORM/DAY
  32. GRANISETRON  HCL [Concomitant]
     Dosage: 2 DOSAGE FORM/DAY
  33. GRANISETRON  HCL [Concomitant]
     Dosage: 1 DOSAGE FORM/DAY
  34. SUCRALFATE [Concomitant]
  35. MORPHINE HYDROCHLORIDE [Concomitant]
     Route: 051
  36. MORPHINE HYDROCHLORIDE [Concomitant]
     Dosage: 1 DOSAGE FORM/DAY
     Route: 048
  37. MAGNESIUM OXIDE [Concomitant]
     Route: 048
  38. ODANSETRON [Concomitant]
     Dosage: 1 DOSAGE FORM/DAY
  39. ACETAZOLAMIDE [Concomitant]
     Route: 048
  40. LANSOPRAZOLE [Concomitant]
     Route: 048
  41. DOMPERIDONE [Concomitant]
  42. DOMPERIDONE [Concomitant]
  43. DOMPERIDONE [Concomitant]
  44. DOMPERIDONE [Concomitant]
  45. DOMPERIDONE [Concomitant]
  46. DOMPERIDONE [Concomitant]
  47. DOMPERIDONE [Concomitant]
  48. DOMPERIDONE [Concomitant]
  49. SENNOSIDE [Concomitant]
     Route: 048
  50. LEUCOVORIN CALCIUM [Concomitant]
     Route: 048

REACTIONS (3)
  - METASTASES TO PLEURA [None]
  - NAUSEA [None]
  - VOMITING [None]
